FAERS Safety Report 10984816 (Version 2)
Quarter: 2015Q2

REPORT INFORMATION
  Report Type: Spontaneous
  Country: US (occurrence: US)
  Receive Date: 20150403
  Receipt Date: 20150525
  Transmission Date: 20150821
  Serious: No
  Sender: FDA-Public Use
  Company Number: US-JNJFOC-20130906798

PATIENT
  Age: 60 Year
  Sex: Male
  Weight: 127.01 kg

DRUGS (2)
  1. IMODIUM A-D [Suspect]
     Active Substance: LOPERAMIDE HYDROCHLORIDE
     Indication: DIARRHOEA
     Dosage: 1 CAPLET, AFTER AN HOUR TAKE ANOTHER. HAD USED THE PRODUCT OVER 10 YEARS.
     Route: 048
     Dates: start: 20130911, end: 20130911
  2. IMODIUM A-D [Suspect]
     Active Substance: LOPERAMIDE HYDROCHLORIDE
     Route: 048

REACTIONS (2)
  - Therapeutic response delayed [Unknown]
  - Intentional product use issue [Unknown]
